FAERS Safety Report 8856967 (Version 1)
Quarter: 2012Q4

REPORT INFORMATION
  Report Type: Spontaneous
  Country: US (occurrence: None)
  Receive Date: 20121023
  Receipt Date: 20121023
  Transmission Date: 20130627
  Serious: Yes (Hospitalization)
  Sender: FDA-Public Use
  Company Number: None

PATIENT
  Sex: Male

DRUGS (4)
  1. PEGASYS [Suspect]
     Indication: HEPATITIS C
     Dates: start: 20120901
  2. INCIVEK [Concomitant]
  3. RIBASPHERE [Concomitant]
  4. ZOFRAN [Concomitant]

REACTIONS (2)
  - Vertigo [None]
  - Nausea [None]
